FAERS Safety Report 15487670 (Version 1)
Quarter: 2018Q4

REPORT INFORMATION
  Report Type: Spontaneous
  Country: FR (occurrence: FR)
  Receive Date: 20181011
  Receipt Date: 20181011
  Transmission Date: 20190205
  Serious: Yes (Hospitalization)
  Sender: FDA-Public Use
  Company Number: FR-JNJFOC-20181006315

PATIENT
  Age: 31 Year
  Sex: Female

DRUGS (1)
  1. RISPERDAL [Suspect]
     Active Substance: RISPERIDONE
     Indication: DELUSIONAL DISORDER, UNSPECIFIED TYPE
     Route: 048
     Dates: start: 20170225, end: 20170225

REACTIONS (6)
  - Logorrhoea [Recovered/Resolved]
  - Incoherent [Recovered/Resolved]
  - Tachycardia [Recovered/Resolved]
  - Tachyphrenia [Recovered/Resolved]
  - Delirium [Recovered/Resolved]
  - Intentional overdose [Recovered/Resolved]

NARRATIVE: CASE EVENT DATE: 20170225
